FAERS Safety Report 8045484-5 (Version None)
Quarter: 2012Q1

REPORT INFORMATION
  Report Type: 
  Country: None (occurrence: None)
  Receive Date: 20120113
  Receipt Date: 20120106
  Transmission Date: 20120608
  Serious: Yes (Other)
  Sender: FDA-Public Use
  Company Number: CA-PFIZER INC-2012005687

PATIENT
  Age: 65 Year
  Sex: Female

DRUGS (2)
  1. SIROLIMUS [Suspect]
     Indication: LIVER TRANSPLANT
     Dosage: UNK
  2. MYCOPHENOLATE MOFETIL [Concomitant]
     Indication: LIVER TRANSPLANT

REACTIONS (2)
  - BIOPSY BLADDER ABNORMAL [None]
  - ASCITES [None]
